FAERS Safety Report 10130488 (Version 2)
Quarter: 2015Q1

REPORT INFORMATION
  Report Type: Other
  Country: None (occurrence: US)
  Receive Date: 20140428
  Receipt Date: 20150122
  Transmission Date: 20150720
  Serious: Yes (Hospitalization, Other)
  Sender: FDA-Public Use
  Company Number: US-GSKPPD-2014GSK035581

PATIENT
  Age: 55 Year
  Sex: Male
  Weight: 99.88 kg

DRUGS (6)
  1. ALDACTONE [Concomitant]
     Active Substance: SPIRONOLACTONE
  2. COREG [Concomitant]
     Active Substance: CARVEDILOL
  3. AVANDIA [Suspect]
     Active Substance: ROSIGLITAZONE MALEATE
     Indication: DIABETES MELLITUS
     Dosage: DATES OF AVANDIA USE COULD NOT BE CONFIRMED IN RECORDS REVIEWED.
     Route: 048
  4. PLAVIX [Concomitant]
     Active Substance: CLOPIDOGREL BISULFATE
  5. AVANDARYL [Suspect]
     Active Substance: GLIMEPIRIDE\ROSIGLITAZONE MALEATE
     Indication: DIABETES MELLITUS
     Dosage: 4-2MG?DATES OF AVANDARYL COULD NOT BE CONFIRMED IN RECORDS REVIEWED.
  6. ZOCOR [Concomitant]
     Active Substance: SIMVASTATIN

REACTIONS (2)
  - Ischaemic cardiomyopathy [Recovered/Resolved]
  - Myocardial infarction [None]

NARRATIVE: CASE EVENT DATE: 20060523
